FAERS Safety Report 20349021 (Version 2)
Quarter: 2022Q2

REPORT INFORMATION
  Report Type: Spontaneous
  Country: US (occurrence: US)
  Receive Date: 20220119
  Receipt Date: 20220422
  Transmission Date: 20220721
  Serious: Yes (Other)
  Sender: FDA-Public Use
  Company Number: US-BRISTOL-MYERS SQUIBB COMPANY-BMS-2022-003884

PATIENT
  Age: 85 Year
  Sex: Female
  Weight: 99.773 kg

DRUGS (1)
  1. ELIQUIS [Suspect]
     Active Substance: APIXABAN
     Indication: Atrial fibrillation
     Dosage: 2.5 MILLIGRAM, BID
     Route: 048

REACTIONS (4)
  - Contusion [Unknown]
  - Haemorrhage subcutaneous [Unknown]
  - Treatment noncompliance [Unknown]
  - COVID-19 [Unknown]
